FAERS Safety Report 4350195-3 (Version None)
Quarter: 2004Q2

REPORT INFORMATION
  Report Type: 
  Country: None (occurrence: None)
  Receive Date: 20040426
  Receipt Date: 20040416
  Transmission Date: 20050107
  Serious: Yes (Hospitalization)
  Sender: FDA-Public Use
  Company Number: 2004-04-0749

PATIENT
  Age: 86 Year
  Sex: Male

DRUGS (9)
  1. EULEXIN [Suspect]
     Indication: PROSTATE CANCER
     Dosage: 250 MG QD ORAL
     Route: 048
     Dates: start: 20040311, end: 20040322
  2. PRAXILENE [Concomitant]
  3. RENITEC [Concomitant]
  4. XATRAL (ALFUZOSIN) [Concomitant]
  5. ZOLPIDEM TARTRATE [Concomitant]
  6. BISOPROLOL FUMARATE [Concomitant]
  7. OMPRAL  (OMEPRAZOLE) [Concomitant]
  8. GASTROM [Concomitant]
  9. VOLTAREN [Concomitant]

REACTIONS (7)
  - ASTHENIA [None]
  - BLOOD POTASSIUM DECREASED [None]
  - DEHYDRATION [None]
  - FOOD INTOLERANCE [None]
  - GENERAL PHYSICAL HEALTH DETERIORATION [None]
  - HYPOKALAEMIA [None]
  - MALNUTRITION [None]
